FAERS Safety Report 12916646 (Version 1)
Quarter: 2016Q4

REPORT INFORMATION
  Report Type: Spontaneous
  Country: US (occurrence: US)
  Receive Date: 20161107
  Receipt Date: 20161107
  Transmission Date: 20170207
  Serious: No
  Sender: FDA-Public Use
  Company Number: US-JAZZ-2016-US-017240

PATIENT
  Sex: Female

DRUGS (40)
  1. CRESTOR [Concomitant]
     Active Substance: ROSUVASTATIN CALCIUM
  2. HUMULIN N [Concomitant]
     Active Substance: INSULIN HUMAN
  3. LANTUS [Concomitant]
     Active Substance: INSULIN GLARGINE
  4. DEPAKOTE [Concomitant]
     Active Substance: DIVALPROEX SODIUM
  5. XYREM [Suspect]
     Active Substance: SODIUM OXYBATE
     Indication: CATAPLEXY
     Dosage: DOSE ADJUSTMENTS
     Route: 048
     Dates: start: 200805, end: 200812
  6. XYREM [Suspect]
     Active Substance: SODIUM OXYBATE
     Dosage: 4.5 G, BID
     Route: 048
     Dates: start: 201604
  7. DULOXETINE HCL [Concomitant]
     Active Substance: DULOXETINE HYDROCHLORIDE
  8. LIDOCAINE. [Concomitant]
     Active Substance: LIDOCAINE
  9. XYREM [Suspect]
     Active Substance: SODIUM OXYBATE
     Dosage: 4.5 G, BID
     Route: 048
     Dates: start: 200812, end: 2010
  10. XYREM [Suspect]
     Active Substance: SODIUM OXYBATE
     Dosage: 4.5 G, BID
     Dates: start: 201208, end: 201511
  11. VALIUM [Concomitant]
     Active Substance: DIAZEPAM
  12. LEVOXYL [Concomitant]
     Active Substance: LEVOTHYROXINE SODIUM
  13. LOSARTAN POTASSIUM. [Concomitant]
     Active Substance: LOSARTAN POTASSIUM
  14. MORPHINE SULF ER [Concomitant]
  15. XYREM [Suspect]
     Active Substance: SODIUM OXYBATE
     Indication: NARCOLEPSY
     Dosage: 2.25 G, BID
     Route: 048
     Dates: start: 200804, end: 200805
  16. ONDANSETRON ODT [Concomitant]
     Active Substance: ONDANSETRON
  17. OMEGA 3 [Concomitant]
     Active Substance: OMEGA-3 FATTY ACIDS
  18. LEVOTHYROXINE SODIUM. [Concomitant]
     Active Substance: LEVOTHYROXINE SODIUM
  19. GABAPENTIN. [Concomitant]
     Active Substance: GABAPENTIN
  20. XYREM [Suspect]
     Active Substance: SODIUM OXYBATE
     Dosage: DOSE ADJUSTMENTS
     Route: 048
     Dates: start: 201511, end: 201604
  21. HUMALOG [Concomitant]
     Active Substance: INSULIN LISPRO
  22. LATISSE [Concomitant]
     Active Substance: BIMATOPROST
  23. MULTIVITAMINS [Concomitant]
     Active Substance: VITAMINS
  24. HUMULIN R [Concomitant]
     Active Substance: INSULIN HUMAN
  25. OXYCONTIN [Concomitant]
     Active Substance: OXYCODONE HYDROCHLORIDE
  26. DICLOFENAC POTASSIUM. [Concomitant]
     Active Substance: DICLOFENAC POTASSIUM
  27. DIPHENHYDRAMINE. [Concomitant]
     Active Substance: DIPHENHYDRAMINE
  28. MELATONIN [Concomitant]
     Active Substance: MELATONIN
  29. METOCLOPRAMIDE. [Concomitant]
     Active Substance: METOCLOPRAMIDE
  30. OXYCODONE [Concomitant]
     Active Substance: OXYCODONE
  31. CALCIUM MAGNESIUM [Concomitant]
     Active Substance: CALCIUM\MAGNESIUM
  32. PRAVASTATIN. [Concomitant]
     Active Substance: PRAVASTATIN
  33. CELEBREX [Concomitant]
     Active Substance: CELECOXIB
  34. ESTRADIOL. [Concomitant]
     Active Substance: ESTRADIOL
  35. FINASTERIDE. [Concomitant]
     Active Substance: FINASTERIDE
  36. KADIAN [Concomitant]
     Active Substance: MORPHINE SULFATE
  37. PROVIGIL [Concomitant]
     Active Substance: MODAFINIL
  38. ARMOUR THYROID [Concomitant]
     Active Substance: THYROID, PORCINE
  39. AMLODIPINE BESYLATE. [Concomitant]
     Active Substance: AMLODIPINE BESYLATE
  40. ASPIRIN. [Concomitant]
     Active Substance: ASPIRIN

REACTIONS (1)
  - Pre-existing condition improved [Unknown]
